FAERS Safety Report 21411879 (Version 1)
Quarter: 2022Q4

REPORT INFORMATION
  Report Type: Spontaneous
  Country: US (occurrence: US)
  Receive Date: 20221005
  Receipt Date: 20221005
  Transmission Date: 20230113
  Serious: Yes (Other)
  Sender: FDA-Public Use
  Company Number: US-MYLANLABS-2022M1110476

PATIENT
  Age: 78 Year
  Sex: Female

DRUGS (8)
  1. CLARITHROMYCIN [Suspect]
     Active Substance: CLARITHROMYCIN
     Indication: Mucous membrane pemphigoid
     Dosage: 500 MILLIGRAM, QD
     Route: 048
     Dates: start: 2019
  2. FAMOTIDINE [Suspect]
     Active Substance: FAMOTIDINE
     Indication: Product used for unknown indication
     Dosage: UNK
     Route: 065
     Dates: end: 2019
  3. DOXYCYCLINE [Suspect]
     Active Substance: DOXYCYCLINE
     Indication: Mucous membrane pemphigoid
     Dosage: 100 MILLIGRAM, BID
     Route: 048
  4. NIACINAMIDE [Suspect]
     Active Substance: NIACINAMIDE
     Indication: Mucous membrane pemphigoid
     Dosage: UNK
     Route: 065
     Dates: start: 2019
  5. NIACINAMIDE [Suspect]
     Active Substance: NIACINAMIDE
     Dosage: 500 MILLIGRAM, BID (WITH DOXYCYCLINE)
     Route: 065
  6. SARECYCLINE [Suspect]
     Active Substance: SARECYCLINE
     Indication: Mucous membrane pemphigoid
     Dosage: 60 MILLIGRAM, QD
     Route: 048
  7. SARECYCLINE [Suspect]
     Active Substance: SARECYCLINE
     Dosage: 100 MILLIGRAM, QD
     Route: 048
     Dates: end: 202107
  8. DEXAMETHASONE [Concomitant]
     Active Substance: DEXAMETHASONE
     Indication: Mucous membrane pemphigoid
     Dosage: UNK (ORAL RINSE)
     Route: 048

REACTIONS (3)
  - Drug ineffective [Unknown]
  - Mucous membrane pemphigoid [Not Recovered/Not Resolved]
  - Abdominal discomfort [Not Recovered/Not Resolved]

NARRATIVE: CASE EVENT DATE: 20190101
